FAERS Safety Report 8189649-0 (Version None)
Quarter: 2012Q1

REPORT INFORMATION
  Report Type: 
  Country: None (occurrence: None)
  Receive Date: 20120307
  Receipt Date: 20120227
  Transmission Date: 20120608
  Serious: Yes (Other)
  Sender: FDA-Public Use
  Company Number: US-PURDUE-USA-2012-0081543

PATIENT
  Sex: Male

DRUGS (2)
  1. OXYCONTIN [Suspect]
     Indication: PAIN
     Dosage: 160 MG, TID PRN
     Route: 048
  2. TESTOSTERONE [Suspect]
     Indication: PRODUCT USED FOR UNKNOWN INDICATION

REACTIONS (7)
  - CELLULITIS [None]
  - SENSORY LOSS [None]
  - THROMBOSIS [None]
  - STAPHYLOCOCCAL SKIN INFECTION [None]
  - TESTICULAR PAIN [None]
  - IMPAIRED DRIVING ABILITY [None]
  - SKIN ULCER [None]
